FAERS Safety Report 4546067-1 (Version None)
Quarter: 2005Q1

REPORT INFORMATION
  Report Type: 
  Country: None (occurrence: None)
  Receive Date: 20050103
  Receipt Date: 20041221
  Transmission Date: 20050727
  Serious: Yes (Hospitalization)
  Sender: FDA-Public Use
  Company Number: 2004116675

PATIENT
  Age: 2 Year
  Sex: Male

DRUGS (1)
  1. BENADRYL [Suspect]
     Indication: ECZEMA
     Dosage: 14-20 TSP IN 10 HOURS, ORAL
     Route: 048
     Dates: start: 19970101, end: 20030101

REACTIONS (13)
  - COGNITIVE DISORDER [None]
  - COMA [None]
  - CONFUSIONAL STATE [None]
  - COORDINATION ABNORMAL [None]
  - DRUG INEFFECTIVE [None]
  - HEADACHE [None]
  - LETHARGY [None]
  - MOOD SWINGS [None]
  - PUPILLARY DISORDER [None]
  - RESPIRATORY TRACT INFECTION [None]
  - ROAD TRAFFIC ACCIDENT [None]
  - SOMNOLENCE [None]
  - TRAUMATIC BRAIN INJURY [None]
